FAERS Safety Report 4825245-8 (Version None)
Quarter: 2005Q4

REPORT INFORMATION
  Report Type: 
  Country: None (occurrence: None)
  Receive Date: 20051109
  Receipt Date: 20050420
  Transmission Date: 20060501
  Serious: Yes (Other)
  Sender: FDA-Public Use
  Company Number: 805#1#2005-00041

PATIENT
  Age: 48 Day
  Sex: Male

DRUGS (20)
  1. ALPROSTADIL [Suspect]
     Indication: HEART DISEASE CONGENITAL
     Dosage: SEE IMAGE
     Route: 041
     Dates: start: 20050119, end: 20050119
  2. ALPROSTADIL [Suspect]
     Indication: HEART DISEASE CONGENITAL
     Dosage: SEE IMAGE
     Route: 041
     Dates: start: 20050119, end: 20050119
  3. ALPROSTADIL [Suspect]
     Indication: HEART DISEASE CONGENITAL
     Dosage: SEE IMAGE
     Route: 041
     Dates: start: 20050119, end: 20050119
  4. ALPROSTADIL [Suspect]
     Indication: HEART DISEASE CONGENITAL
     Dosage: SEE IMAGE
     Route: 041
     Dates: start: 20050119, end: 20050119
  5. ALPROSTADIL [Suspect]
     Indication: HEART DISEASE CONGENITAL
     Dosage: SEE IMAGE
     Route: 041
     Dates: start: 20050119, end: 20050120
  6. ALPROSTADIL [Suspect]
     Indication: HEART DISEASE CONGENITAL
     Dosage: SEE IMAGE
     Route: 041
     Dates: start: 20050120, end: 20050221
  7. ALPROSTADIL [Suspect]
     Indication: HEART DISEASE CONGENITAL
     Dosage: SEE IMAGE
     Route: 041
     Dates: start: 20050221, end: 20050304
  8. ALPROSTADIL [Suspect]
     Indication: HEART DISEASE CONGENITAL
     Dosage: SEE IMAGE
     Route: 041
     Dates: start: 20050304, end: 20050308
  9. ALPROSTADIL [Suspect]
     Indication: HEART DISEASE CONGENITAL
     Dosage: SEE IMAGE
     Route: 041
     Dates: start: 20050308, end: 20050309
  10. ALPROSTADIL [Suspect]
     Indication: HEART DISEASE CONGENITAL
     Dosage: SEE IMAGE
     Route: 041
     Dates: start: 20050309, end: 20050311
  11. ALPROSTADIL [Suspect]
     Indication: HEART DISEASE CONGENITAL
     Dosage: SEE IMAGE
     Route: 041
     Dates: start: 20050311, end: 20050312
  12. TRICLOFOS-SODIUM             (TRICLOFOS SODIUM) [Suspect]
     Dosage: 350 MG
     Route: 048
     Dates: start: 20050303, end: 20050303
  13. PHENOBARBITAL SODIUM 100MG CAP [Suspect]
     Dosage: 15 MG
     Route: 054
     Dates: start: 20050305, end: 20050307
  14. DIAZEPAM [Suspect]
     Dosage: 1.5 MG
     Route: 041
     Dates: start: 20050306, end: 20050307
  15. NITROUS OXIDE (NITROUS OXIDE) [Suspect]
     Indication: GENERAL ANAESTHESIA
     Route: 055
     Dates: start: 20050308, end: 20050308
  16. SEVOFLURANE [Suspect]
     Indication: GENERAL ANAESTHESIA
     Route: 055
  17. FERRIC-PYROPHOSPHONATE (CYANOCOBALAMIN, LYSINE HYDROCHLORIDE, PYRIDOXI [Concomitant]
  18. CARTEOLOL-HYDROCHLORIDE (CARTEOLOL HYDROCHLORIDE) [Concomitant]
  19. TULOBUTEROL-HYDROCHLORIDE (TULOBUTEROL HYDROCHLORIDE) [Concomitant]
  20. THEOPHYLLINE [Concomitant]

REACTIONS (5)
  - BODY TEMPERATURE DECREASED [None]
  - BODY TEMPERATURE INCREASED [None]
  - INFANTILE APNOEIC ATTACK [None]
  - PO2 DECREASED [None]
  - PROCEDURAL COMPLICATION [None]
